FAERS Safety Report 13799170 (Version 1)
Quarter: 2017Q3

REPORT INFORMATION
  Report Type: Spontaneous
  Country: US (occurrence: US)
  Receive Date: 20170727
  Receipt Date: 20170727
  Transmission Date: 20171127
  Serious: Yes (Hospitalization)
  Sender: FDA-Public Use
  Company Number: None

PATIENT
  Age: 55 Year
  Sex: Male
  Weight: 80.2 kg

DRUGS (3)
  1. ELOXATIN [Suspect]
     Active Substance: OXALIPLATIN
     Dates: end: 20170717
  2. LEUCOVORIN CALCIUM. [Suspect]
     Active Substance: LEUCOVORIN CALCIUM
     Dates: end: 20170717
  3. 5-FLUOROURACIL (5-FU) (19893) [Suspect]
     Active Substance: FLUOROURACIL
     Dates: end: 20170717

REACTIONS (9)
  - Pyrexia [None]
  - Headache [None]
  - Productive cough [None]
  - Dizziness [None]
  - Blood lactic acid decreased [None]
  - Pneumonia [None]
  - White blood cell count increased [None]
  - Tachycardia [None]
  - Lung infiltration [None]

NARRATIVE: CASE EVENT DATE: 20170718
